FAERS Safety Report 7899862-5 (Version None)
Quarter: 2011Q4

REPORT INFORMATION
  Report Type: 
  Country: None (occurrence: None)
  Receive Date: 20111107
  Receipt Date: 20110927
  Transmission Date: 20120403
  Serious: No
  Sender: FDA-Public Use
  Company Number: US-AMGEN-USASP2011039221

PATIENT
  Age: 71 Year
  Sex: Male

DRUGS (4)
  1. ALENDRONATE SODIUM [Concomitant]
     Dosage: UNK
  2. ENBREL [Suspect]
     Indication: RHEUMATOID ARTHRITIS
     Dosage: 50 MG, WEEKLY (ONCE A WEEK)
     Route: 058
     Dates: start: 20030101, end: 20110501
  3. METHOTREXATE [Concomitant]
     Dosage: UNK
  4. KETOPROFEN [Concomitant]
     Dosage: UNK

REACTIONS (2)
  - EOSINOPHILIA [None]
  - PRURITUS GENERALISED [None]
